FAERS Safety Report 9068700 (Version 1)
Quarter: 2013Q1

REPORT INFORMATION
  Report Type: Spontaneous
  Country: US (occurrence: None)
  Receive Date: 20130212
  Receipt Date: 20130212
  Transmission Date: 20140127
  Serious: Yes (Other)
  Sender: FDA-Public Use
  Company Number: None

PATIENT
  Age: 13 Year
  Sex: Female
  Weight: 138 kg

DRUGS (4)
  1. SYNTHROID [Suspect]
     Indication: HYPOTHYROIDISM
     Dosage: SYNTHROID 125MCG  DAILY  PO?} 1 YEAR
     Route: 048
  2. LISINOPRIL/HCTZ [Concomitant]
  3. GLIMEPIRIDE [Concomitant]
  4. RIOMET [Concomitant]

REACTIONS (1)
  - Product formulation issue [None]
